FAERS Safety Report 8329108-5 (Version None)
Quarter: 2012Q2

REPORT INFORMATION
  Report Type: 
  Country: None (occurrence: None)
  Receive Date: 20120502
  Receipt Date: 20101012
  Transmission Date: 20120825
  Serious: No
  Sender: FDA-Public Use
  Company Number: US-TEVA-2010005394

PATIENT
  Sex: Female

DRUGS (7)
  1. ABILIFY [Concomitant]
     Indication: PSYCHOTIC DISORDER
     Dates: start: 20050101
  2. DIOVAN [Concomitant]
     Dates: start: 20080101
  3. FEXOFENADINE [Concomitant]
     Indication: HYPERSENSITIVITY
     Dates: start: 20060101
  4. OMEPRAZOLE [Concomitant]
     Indication: GASTROINTESTINAL DISORDER
     Dates: start: 20060101
  5. CYMBALTA [Concomitant]
     Indication: DEPRESSION
     Dates: start: 20080101
  6. NUVIGIL [Suspect]
     Indication: SLEEP DISORDER
     Route: 048
     Dates: start: 20101003
  7. ATIVAN [Concomitant]
     Indication: INSOMNIA
     Dates: start: 20050101

REACTIONS (2)
  - SALIVARY GLAND ENLARGEMENT [None]
  - GLOSSITIS [None]
